FAERS Safety Report 14847918 (Version 1)
Quarter: 2018Q2

REPORT INFORMATION
  Report Type: Spontaneous
  Country: CH (occurrence: CH)
  Receive Date: 20180504
  Receipt Date: 20180504
  Transmission Date: 20180711
  Serious: Yes (Other)
  Sender: FDA-Public Use
  Company Number: CH-SA-2018SA119925

PATIENT
  Age: 42 Year
  Sex: Female

DRUGS (9)
  1. TRAMAL [Suspect]
     Active Substance: TRAMADOL
     Route: 048
  2. ANXIOLIT [Suspect]
     Active Substance: OXAZEPAM
     Route: 048
  3. CALCIMAGON-D3 [Concomitant]
     Active Substance: CALCIUM\CHOLECALCIFEROL
     Route: 048
  4. STILNOX CR [Suspect]
     Active Substance: ZOLPIDEM TARTRATE
     Route: 048
  5. STILNOX [Suspect]
     Active Substance: ZOLPIDEM TARTRATE
     Route: 048
  6. CO-DAFALGAN [Suspect]
     Active Substance: ACETAMINOPHEN\CODEINE PHOSPHATE
     Route: 048
  7. LACTASE [Concomitant]
     Active Substance: LACTASE
     Route: 048
  8. SIRDALUD [Suspect]
     Active Substance: TIZANIDINE
     Route: 048
     Dates: start: 2017
  9. MAGNESIOCARD [Concomitant]
     Active Substance: MAGNESIUM ASPARTATE HYDROCHLORIDE
     Route: 048

REACTIONS (2)
  - Exposure during pregnancy [Unknown]
  - Abortion [Unknown]
